FAERS Safety Report 12062827 (Version 1)
Quarter: 2016Q1

REPORT INFORMATION
  Report Type: Spontaneous
  Country: US (occurrence: US)
  Receive Date: 20160210
  Receipt Date: 20160210
  Transmission Date: 20160526
  Serious: No
  Sender: FDA-Public Use
  Company Number: US-ALLERGAN-1505596US

PATIENT
  Age: 62 Year
  Sex: Male
  Weight: 126.53 kg

DRUGS (2)
  1. BOTOX [Suspect]
     Active Substance: ONABOTULINUMTOXINA
     Indication: MIGRAINE
     Dosage: 125 UNITS, SINGLE
     Route: 030
     Dates: start: 20141219, end: 20141219
  2. BOTOX [Suspect]
     Active Substance: ONABOTULINUMTOXINA
     Dosage: 155 UNITS, SINGLE
     Route: 030
     Dates: start: 20141003, end: 20141003

REACTIONS (8)
  - Chest pain [Recovered/Resolved]
  - Back pain [Recovered/Resolved]
  - Frequent bowel movements [Unknown]
  - Arthralgia [Recovered/Resolved]
  - Headache [Unknown]
  - Therapeutic response decreased [Unknown]
  - Eyelid ptosis [Recovering/Resolving]
  - Pain in extremity [Recovered/Resolved]

NARRATIVE: CASE EVENT DATE: 20141004
